FAERS Safety Report 9751507 (Version 1)
Quarter: 2013Q4

REPORT INFORMATION
  Report Type: Spontaneous
  Country: US (occurrence: US)
  Receive Date: 20131212
  Receipt Date: 20131212
  Transmission Date: 20140711
  Serious: No
  Sender: FDA-Public Use
  Company Number: US-PURDUE-USA-2013-0097724

PATIENT
  Sex: Male

DRUGS (3)
  1. DILAUDID TABLET [Suspect]
     Indication: PAIN
     Dosage: UNK UNK, SEE TEXT
     Route: 048
  2. VALIUM [Suspect]
     Indication: PAIN
     Dosage: UNK UNK, SEE TEXT
     Route: 048
  3. ALCOHOL [Suspect]
     Indication: PRODUCT USED FOR UNKNOWN INDICATION
     Route: 048

REACTIONS (4)
  - Overdose [Unknown]
  - Alcohol poisoning [Unknown]
  - Memory impairment [Unknown]
  - Accident [Unknown]
